FAERS Safety Report 5810425-5 (Version None)
Quarter: 2008Q3

REPORT INFORMATION
  Report Type: 
  Country: None (occurrence: None)
  Receive Date: 20080715
  Receipt Date: 20080703
  Transmission Date: 20090109
  Serious: Yes (Other)
  Sender: FDA-Public Use
  Company Number: DK-PFIZER INC-2008030426

PATIENT
  Sex: Female
  Weight: 61 kg

DRUGS (7)
  1. VARENICLINE TABLETS [Suspect]
     Indication: EX-TOBACCO USER
     Route: 048
     Dates: start: 20071102, end: 20080131
  2. SIMVASTATIN [Concomitant]
  3. ALENDRONIC ACID [Concomitant]
     Route: 048
  4. ACETYLSALICYLIC ACID SRT [Concomitant]
  5. CALCIUM COMPOUNDS [Concomitant]
  6. IMOVANE [Concomitant]
     Route: 048
  7. ALOPAM [Concomitant]
     Route: 048
     Dates: start: 20030101

REACTIONS (7)
  - CHEST DISCOMFORT [None]
  - FATIGUE [None]
  - INCOHERENT [None]
  - MEMORY IMPAIRMENT [None]
  - MOOD SWINGS [None]
  - OEDEMA PERIPHERAL [None]
  - SLEEP DISORDER [None]
